FAERS Safety Report 23282281 (Version 1)
Quarter: 2023Q4

REPORT INFORMATION
  Report Type: Spontaneous
  Country: US (occurrence: US)
  Receive Date: 20231211
  Receipt Date: 20231211
  Transmission Date: 20240109
  Serious: No
  Sender: FDA-Public Use
  Company Number: US-SANOFI-01865548

PATIENT
  Sex: Male

DRUGS (1)
  1. DUPIXENT [Suspect]
     Active Substance: DUPILUMAB
     Indication: Eosinophilic oesophagitis
     Dosage: UNK
     Route: 065

REACTIONS (2)
  - Injection site haemorrhage [Recovering/Resolving]
  - Injection site swelling [Recovered/Resolved]

NARRATIVE: CASE EVENT DATE: 20231204
